FAERS Safety Report 20196770 (Version 1)
Quarter: 2021Q4

REPORT INFORMATION
  Report Type: Spontaneous
  Country: IR (occurrence: IR)
  Receive Date: 20211216
  Receipt Date: 20211216
  Transmission Date: 20220303
  Serious: Yes (Hospitalization)
  Sender: FDA-Public Use
  Company Number: IR-STRIDES ARCOLAB LIMITED-2021SP031131

PATIENT
  Age: 41 Year
  Sex: Female

DRUGS (9)
  1. PREDNISOLONE [Suspect]
     Active Substance: PREDNISOLONE
     Indication: Systemic lupus erythematosus
     Dosage: UNK
     Route: 065
  2. ERYTHROMYCIN [Suspect]
     Active Substance: ERYTHROMYCIN
     Indication: Infection prophylaxis
     Dosage: UNK
     Route: 065
  3. AZATHIOPRINE [Suspect]
     Active Substance: AZATHIOPRINE
     Indication: Systemic lupus erythematosus
     Dosage: UNK
     Route: 065
  4. HYDROXYCHLOROQUINE [Suspect]
     Active Substance: HYDROXYCHLOROQUINE
     Indication: Systemic lupus erythematosus
     Dosage: UNK
     Route: 065
  5. MAGNESIUM SULFATE [Suspect]
     Active Substance: MAGNESIUM SULFATE
     Indication: Premature labour
     Dosage: UNK
     Route: 065
  6. BETAMETHASONE [Suspect]
     Active Substance: BETAMETHASONE
     Indication: Maternal therapy to enhance foetal lung maturity
     Dosage: UNK, RECEIVED TWO DOSES OVER 48 HOURS
     Route: 065
  7. AMPICILLIN [Suspect]
     Active Substance: AMPICILLIN
     Indication: Infection prophylaxis
     Dosage: UNK
     Route: 065
  8. CALCIUM\CHOLECALCIFEROL [Suspect]
     Active Substance: CALCIUM\CHOLECALCIFEROL
     Indication: Mineral supplementation
     Dosage: UNK
     Route: 065
  9. MISOPROSTOL [Suspect]
     Active Substance: MISOPROSTOL
     Indication: Postpartum haemorrhage
     Dosage: UNK
     Route: 065

REACTIONS (5)
  - Premature rupture of membranes [Unknown]
  - Premature separation of placenta [Unknown]
  - Postpartum haemorrhage [Unknown]
  - Maternal exposure during pregnancy [Unknown]
  - Drug ineffective [Unknown]
